FAERS Safety Report 25118883 (Version 2)
Quarter: 2025Q1

REPORT INFORMATION
  Report Type: Spontaneous
  Country: US (occurrence: US)
  Receive Date: 20250325
  Receipt Date: 20250327
  Transmission Date: 20250408
  Serious: No
  Sender: SANOFI AVENTIS
  Company Number: US-SA-2025SA077962

PATIENT
  Age: 73 Year
  Sex: Female

DRUGS (1)
  1. DUPIXENT [Suspect]
     Active Substance: DUPILUMAB
     Indication: Neurodermatitis
     Route: 058
     Dates: start: 20250313, end: 20250313

REACTIONS (7)
  - Throat clearing [Unknown]
  - Wound [Recovered/Resolved]
  - Contusion [Recovered/Resolved]
  - Myalgia [Unknown]
  - Erythema [Recovered/Resolved]
  - Oral herpes [Unknown]
  - Injection site pain [Recovered/Resolved]

NARRATIVE: CASE EVENT DATE: 20250301
